FAERS Safety Report 26208813 (Version 1)
Quarter: 2025Q4

REPORT INFORMATION
  Report Type: Spontaneous
  Country: US (occurrence: None)
  Receive Date: 20251228
  Receipt Date: 20251228
  Transmission Date: 20260117
  Serious: Yes (Disabling)
  Sender: FDA-CTU
  Company Number: None

PATIENT
  Age: 37 Year
  Sex: Female
  Weight: 56.25 kg

DRUGS (2)
  1. DEXTROAMPHETAMINE [Suspect]
     Active Substance: DEXTROAMPHETAMINE
  2. ZOLOFT [Concomitant]
     Active Substance: SERTRALINE HYDROCHLORIDE

REACTIONS (5)
  - Chest pain [None]
  - Oral pain [None]
  - Paraesthesia oral [None]
  - Peripheral coldness [None]
  - Gastrointestinal disorder [None]
